FAERS Safety Report 5061497-X (Version None)
Quarter: 2006Q3

REPORT INFORMATION
  Report Type: 
  Country: None (occurrence: None)
  Receive Date: 20060725
  Receipt Date: 20060720
  Transmission Date: 20061208
  Serious: Yes (Other)
  Sender: FDA-Public Use
  Company Number: JP-JNJFOC-20060601681

PATIENT
  Age: 79 Year
  Sex: Female

DRUGS (7)
  1. MICONAZOLE [Suspect]
     Indication: ORAL CANDIDIASIS
     Route: 048
     Dates: start: 20060202, end: 20060207
  2. ATORVASTATIN CALCIUM [Interacting]
     Indication: DRUG USE FOR UNKNOWN INDICATION
     Route: 065
  3. DIGOXIN [Interacting]
     Indication: DRUG USE FOR UNKNOWN INDICATION
     Route: 065
  4. TEPRENONE [Interacting]
     Indication: DRUG USE FOR UNKNOWN INDICATION
     Route: 065
  5. FUROSEMIDE [Interacting]
     Indication: DRUG USE FOR UNKNOWN INDICATION
     Route: 065
  6. WARFARIN SODIUM [Interacting]
     Indication: DRUG USE FOR UNKNOWN INDICATION
     Route: 065
  7. DILTIAZEM HYDROCHLORIDE [Interacting]
     Indication: DRUG USE FOR UNKNOWN INDICATION
     Route: 065

REACTIONS (3)
  - DRUG INTERACTION [None]
  - HAEMORRHAGE SUBCUTANEOUS [None]
  - PARALYSIS [None]
